FAERS Safety Report 20458004 (Version 1)
Quarter: 2022Q1

REPORT INFORMATION
  Report Type: Spontaneous
  Country: CN (occurrence: CN)
  Receive Date: 20220211
  Receipt Date: 20220211
  Transmission Date: 20220423
  Serious: Yes (Other)
  Sender: FDA-Public Use
  Company Number: CN-BRISTOL-MYERS SQUIBB COMPANY-BMS-2022-014820

PATIENT
  Age: 63 Year
  Sex: Female
  Weight: 48 kg

DRUGS (3)
  1. OPDIVO [Suspect]
     Active Substance: NIVOLUMAB
     Indication: Malignant melanoma
     Dosage: 140 MILLIGRAM, ONCE AS A SINGLE DOSE
     Route: 041
     Dates: start: 20220107, end: 20220107
  2. YERVOY [Suspect]
     Active Substance: IPILIMUMAB
     Indication: Malignant melanoma
     Dosage: 50 MILLIGRAM, ONCE AS A SINGLE DOSE
     Route: 041
     Dates: start: 20220107, end: 20220107
  3. SODIUM CHLORIDE [Concomitant]
     Active Substance: SODIUM CHLORIDE
     Indication: Product used for unknown indication
     Dosage: 0.9% SODIUM CHLORIDE 50ML
     Route: 065
     Dates: start: 20220107, end: 20220107

REACTIONS (10)
  - Thrombocytopenia [Recovering/Resolving]
  - Disseminated intravascular coagulation [Recovering/Resolving]
  - Myelosuppression [Recovering/Resolving]
  - Transaminases increased [Recovering/Resolving]
  - Red blood cell count decreased [Recovering/Resolving]
  - Haemoglobin decreased [Recovering/Resolving]
  - Gingival bleeding [Recovering/Resolving]
  - Blood fibrinogen decreased [Recovering/Resolving]
  - Coagulopathy [Recovering/Resolving]
  - Off label use [Unknown]

NARRATIVE: CASE EVENT DATE: 20220112
